FAERS Safety Report 8385984-1 (Version None)
Quarter: 2012Q2

REPORT INFORMATION
  Report Type: 
  Country: None (occurrence: None)
  Receive Date: 20120525
  Receipt Date: 20120519
  Transmission Date: 20120825
  Serious: Yes (Other)
  Sender: FDA-Public Use
  Company Number: SE-JNJFOC-20120511218

PATIENT
  Age: 27 Year
  Sex: Male

DRUGS (6)
  1. TPN [Concomitant]
     Route: 065
  2. MINOXIDIL [Suspect]
     Route: 061
  3. MINOXIDIL [Suspect]
     Indication: ALOPECIA
     Route: 061
     Dates: start: 20110201, end: 20120511
  4. MINOXIDIL [Suspect]
     Indication: PRODUCT USED FOR UNKNOWN INDICATION
     Route: 061
     Dates: start: 20110101
  5. PRIORIN N [Concomitant]
     Route: 065
  6. TPN [Concomitant]
     Route: 065

REACTIONS (3)
  - HEART VALVE INCOMPETENCE [None]
  - OVERDOSE [None]
  - DRUG INEFFECTIVE [None]
